FAERS Safety Report 6651692-8 (Version None)
Quarter: 2010Q1

REPORT INFORMATION
  Report Type: 
  Country: None (occurrence: None)
  Receive Date: 20100325
  Receipt Date: 20100317
  Transmission Date: 20100710
  Serious: Yes (Hospitalization, Other)
  Sender: FDA-Public Use
  Company Number: US-BAYER-200610632BWH

PATIENT
  Age: 73 Year
  Sex: Male

DRUGS (9)
  1. NEXAVAR [Suspect]
     Indication: RENAL CELL CARCINOMA
     Dosage: AS USED: 400-200 MG  UNIT DOSE: 200 MG
     Route: 048
     Dates: start: 20060112, end: 20100122
  2. ANTI HYPERTENSIVE MEDICATION (NOS) [Concomitant]
  3. AVAPRO [Concomitant]
  4. ATENOLOL [Concomitant]
  5. PROSCAR [Concomitant]
  6. NORVASC [Concomitant]
  7. JANTOVEN [Concomitant]
     Dosage: TOTAL DAILY DOSE: 5 MG
  8. CARVEDILOL [Concomitant]
     Dosage: TOTAL DAILY DOSE: 6.25 MG
  9. COUMADIN [Concomitant]
     Dosage: THERAPEUTIC DOSES

REACTIONS (13)
  - ALOPECIA [None]
  - BLISTER [None]
  - BLOOD CREATININE INCREASED [None]
  - CARDIAC FAILURE CONGESTIVE [None]
  - DIARRHOEA [None]
  - DYSPNOEA [None]
  - FATIGUE [None]
  - OEDEMA PERIPHERAL [None]
  - PAIN IN EXTREMITY [None]
  - PULMONARY OEDEMA [None]
  - RASH [None]
  - RENAL FAILURE CHRONIC [None]
  - SKIN DISCOLOURATION [None]
